FAERS Safety Report 9406566 (Version 2)
Quarter: 2013Q3

REPORT INFORMATION
  Report Type: Spontaneous
  Country: US (occurrence: US)
  Receive Date: 20130718
  Receipt Date: 20130812
  Transmission Date: 20140515
  Serious: Yes (Other)
  Sender: FDA-Public Use
  Company Number: US-JNJFOC-20130516302

PATIENT
  Age: 75 Year
  Sex: Male

DRUGS (2)
  1. ZYTIGA [Suspect]
     Indication: PROSTATE CANCER
     Dosage: 240 MG X 4 TABLETS = 1000 MG
     Route: 048
     Dates: start: 201109
  2. ZOLADEX [Suspect]
     Indication: PROSTATE CANCER
     Route: 065
     Dates: start: 2001

REACTIONS (1)
  - Platelet count decreased [Not Recovered/Not Resolved]
